FAERS Safety Report 13374919 (Version 1)
Quarter: 2017Q1

REPORT INFORMATION
  Report Type: Spontaneous
  Country: US (occurrence: US)
  Receive Date: 20170327
  Receipt Date: 20170327
  Transmission Date: 20170429
  Serious: Yes (Hospitalization)
  Sender: FDA-Public Use
  Company Number: US-PFIZER INC-2017036225

PATIENT
  Age: 73 Year
  Sex: Female

DRUGS (2)
  1. DEPO-MEDROL [Suspect]
     Active Substance: METHYLPREDNISOLONE ACETATE
     Dosage: UNK (MIXED WITH 80 MG, DEPO-MEDROL PF)
  2. SODIUM CHLORIDE. [Suspect]
     Active Substance: SODIUM CHLORIDE
     Indication: BACK PAIN
     Dosage: 9 ML, UNK (SINGLE DOSE 9 ML )
     Route: 008
     Dates: start: 20170110, end: 20170110

REACTIONS (5)
  - Asthenia [Recovering/Resolving]
  - Syncope [Recovering/Resolving]
  - Confusional state [Recovering/Resolving]
  - Dizziness [Recovering/Resolving]
  - Blood pressure increased [Recovering/Resolving]

NARRATIVE: CASE EVENT DATE: 20170110
